FAERS Safety Report 5626972-5 (Version None)
Quarter: 2008Q1

REPORT INFORMATION
  Report Type: 
  Country: None (occurrence: None)
  Receive Date: 20080130
  Receipt Date: 20070723
  Transmission Date: 20080703
  Serious: Yes (Other)
  Sender: FDA-Public Use
  Company Number: HQWYE195624JUL07

PATIENT
  Age: 81 Year
  Sex: Male
  Weight: 65.83 kg

DRUGS (1)
  1. CORDARONE [Suspect]
     Indication: ARRHYTHMIA
     Dosage: ORAL
     Route: 048
     Dates: start: 20070201, end: 20070712

REACTIONS (1)
  - BLINDNESS [None]
